FAERS Safety Report 16754533 (Version 3)
Quarter: 2019Q4

REPORT INFORMATION
  Report Type: Spontaneous
  Country: US (occurrence: US)
  Receive Date: 20190829
  Receipt Date: 20191017
  Transmission Date: 20200122
  Serious: No
  Sender: FDA-Public Use
  Company Number: US-PFIZER INC-2019371511

PATIENT
  Age: 87 Year
  Sex: Female
  Weight: 57.14 kg

DRUGS (2)
  1. LYRICA [Suspect]
     Active Substance: PREGABALIN
     Indication: HERPES ZOSTER
     Dosage: 75 MG, 2X/DAY
     Dates: start: 201808
  2. VALACYCLOVIR HCL [Concomitant]
     Active Substance: VALACYCLOVIR HYDROCHLORIDE
     Dosage: 1 MG, 2X/DAY
     Dates: start: 20190515

REACTIONS (2)
  - Nasopharyngitis [Not Recovered/Not Resolved]
  - Hypoacusis [Unknown]
